FAERS Safety Report 8593192-4 (Version None)
Quarter: 2012Q3

REPORT INFORMATION
  Report Type: 
  Country: None (occurrence: None)
  Receive Date: 20120814
  Receipt Date: 20120809
  Transmission Date: 20120928
  Serious: Yes (Hospitalization, Other)
  Sender: FDA-Public Use
  Company Number: FR-PFIZER INC-2012187589

PATIENT
  Age: 57 Year
  Sex: Female

DRUGS (17)
  1. CETIRIZINE HCL [Suspect]
     Dosage: 10 MG, 1X/DAY
     Route: 048
     Dates: end: 20120621
  2. OXYCODONE HYDROCHLORIDE [Suspect]
     Indication: PAIN
     Dosage: UNK
     Route: 048
     Dates: end: 20120621
  3. ACETAMINOPHEN [Concomitant]
  4. OXYCONTIN [Suspect]
     Dosage: 20 MG, 2X/DAY
     Route: 048
     Dates: start: 20120301, end: 20120621
  5. CYMBALTA [Concomitant]
  6. LOSARTAN [Concomitant]
  7. LEVOTHYROXINE SODIUM [Concomitant]
  8. LANTUS [Concomitant]
  9. NICARDIPINE HCL [Concomitant]
  10. RABEPRAZOLE SODIUM [Concomitant]
  11. LYRICA [Suspect]
     Dosage: 100 MG, 1X/DAY
     Route: 048
     Dates: end: 20120621
  12. PREVISCAN [Concomitant]
  13. ISOPTIN [Concomitant]
  14. ATORVASTATIN [Concomitant]
  15. CLONAZEPAM [Suspect]
     Dosage: 5 GTT, 1X/DAY
     Route: 048
     Dates: end: 20120621
  16. AMITRIPTYLINE HYDROCHLORIDE [Suspect]
     Dosage: 50 MG, 1X/DAY
     Route: 042
     Dates: end: 20120621
  17. ASPIRIN [Concomitant]

REACTIONS (5)
  - FALL [None]
  - URINARY TRACT INFECTION [None]
  - JOINT SWELLING [None]
  - DISTURBANCE IN ATTENTION [None]
  - ARTHRALGIA [None]
